FAERS Safety Report 19603698 (Version 2)
Quarter: 2021Q3

REPORT INFORMATION
  Report Type: Other
  Country: US (occurrence: US)
  Receive Date: 20210723
  Receipt Date: 20210728
  Transmission Date: 20211014
  Serious: Yes (Other)
  Sender: FDA-Public Use
  Company Number: US-ROCHE-2775397

PATIENT
  Sex: Male

DRUGS (10)
  1. XARELTO [Concomitant]
     Active Substance: RIVAROXABAN
  2. ZELBORAF [Suspect]
     Active Substance: VEMURAFENIB
     Indication: HISTIOCYTOSIS
  3. DESMOPRESSIN [Concomitant]
     Active Substance: DESMOPRESSIN
  4. ZELBORAF [Suspect]
     Active Substance: VEMURAFENIB
     Indication: METASTATIC MALIGNANT MELANOMA
     Dosage: TAKE 3 TABLET(S) BY MOUTH TWICE A DAY (EVERY 12 HOURS) SWALLOW WHOLE.
     Route: 048
  5. ZELBORAF [Suspect]
     Active Substance: VEMURAFENIB
     Indication: MALIGNANT CONNECTIVE TISSUE NEOPLASM
  6. KLONOPIN [Suspect]
     Active Substance: CLONAZEPAM
     Indication: PRODUCT USED FOR UNKNOWN INDICATION
     Route: 065
  7. ZELBORAF [Suspect]
     Active Substance: VEMURAFENIB
     Indication: MALIGNANT MELANOMA
  8. QUETIAPINE. [Concomitant]
     Active Substance: QUETIAPINE
  9. TRAZODONE [Concomitant]
     Active Substance: TRAZODONE HYDROCHLORIDE
  10. GLUCOSAMINE [Concomitant]
     Active Substance: GLUCOSAMINE

REACTIONS (3)
  - Respiratory tract infection [Unknown]
  - Dysarthria [Unknown]
  - Off label use [Unknown]
